FAERS Safety Report 6380638-5 (Version None)
Quarter: 2009Q3

REPORT INFORMATION
  Report Type: 
  Country: None (occurrence: None)
  Receive Date: 20090923
  Receipt Date: 20090916
  Transmission Date: 20100115
  Serious: Yes (Death)
  Sender: FDA-Public Use
  Company Number: GXKR2009DE10377

PATIENT
  Age: 55 Year
  Sex: Male

DRUGS (3)
  1. DOXEPIN HCL [Suspect]
     Dosage: ORAL
     Route: 048
  2. CITALOPRAM HYDROBROMIDE [Suspect]
  3. ALCOHOL (ETHANOL) [Suspect]

REACTIONS (1)
  - DEATH [None]
